FAERS Safety Report 4510224-0 (Version None)
Quarter: 2004Q4

REPORT INFORMATION
  Report Type: 
  Country: None (occurrence: None)
  Receive Date: 20041119
  Receipt Date: 20041110
  Transmission Date: 20050328
  Serious: Yes (Death)
  Sender: FDA-Public Use
  Company Number: 2004-04835

PATIENT
  Age: 38 Year
  Sex: Female

DRUGS (4)
  1. FERRLECIT [Suspect]
     Indication: IRON DEFICIENCY ANAEMIA
     Dosage: 62.5 MG, DAILY, INTRAVENOUS
     Route: 042
     Dates: start: 20041022, end: 20041024
  2. INDOMETHACIN [Concomitant]
  3. PANTOPRAZOLE (PANTOPRAZOLE) [Concomitant]
  4. PREDNISONE [Concomitant]

REACTIONS (2)
  - HYPERSENSITIVITY [None]
  - RASH ERYTHEMATOUS [None]
